FAERS Safety Report 4821140-9 (Version None)
Quarter: 2005Q4

REPORT INFORMATION
  Report Type: 
  Country: None (occurrence: None)
  Receive Date: 20051107
  Receipt Date: 20051031
  Transmission Date: 20060501
  Serious: Yes (Hospitalization)
  Sender: FDA-Public Use
  Company Number: JP-SP-2005-02297

PATIENT
  Age: 64 Year

DRUGS (1)
  1. IMMUCYST [Suspect]
     Indication: BLADDER CANCER
     Route: 043
     Dates: start: 20050908, end: 20051006

REACTIONS (3)
  - BACK PAIN [None]
  - PLATELET COUNT INCREASED [None]
  - SHOULDER PAIN [None]
